FAERS Safety Report 4341941-3 (Version None)
Quarter: 2004Q2

REPORT INFORMATION
  Report Type: 
  Country: None (occurrence: None)
  Receive Date: 20040415
  Receipt Date: 20040330
  Transmission Date: 20050107
  Serious: Yes (Other)
  Sender: FDA-Public Use
  Company Number: USA040157618

PATIENT
  Age: 5 Year
  Sex: Male
  Weight: 41 kg

DRUGS (3)
  1. STRATTERA [Suspect]
     Indication: ATTENTION DEFICIT/HYPERACTIVITY DISORDER
     Dosage: 40 MG/DAY
     Dates: start: 20031223
  2. ADDERALL 10 [Concomitant]
  3. VALPROIC ACID [Concomitant]

REACTIONS (6)
  - COMA [None]
  - DROOLING [None]
  - ELECTROENCEPHALOGRAM ABNORMAL [None]
  - EPILEPSY [None]
  - FALL [None]
  - VOMITING [None]
